FAERS Safety Report 7510935-9 (Version None)
Quarter: 2011Q2

REPORT INFORMATION
  Report Type: 
  Country: None (occurrence: None)
  Receive Date: 20110531
  Receipt Date: 20100217
  Transmission Date: 20111010
  Serious: No
  Sender: FDA-Public Use
  Company Number: 2010BI006815

PATIENT
  Age: 37 Year
  Sex: Female

DRUGS (3)
  1. TYSABRI [Suspect]
     Indication: MULTIPLE SCLEROSIS
     Route: 042
     Dates: start: 20070823, end: 20070925
  2. TYSABRI [Suspect]
     Route: 042
     Dates: start: 20080525
  3. DIOVAN [Concomitant]
     Indication: HYPERTENSION

REACTIONS (14)
  - MULTIPLE SCLEROSIS RELAPSE [None]
  - INSOMNIA [None]
  - FATIGUE [None]
  - ABASIA [None]
  - FEMALE STERILISATION [None]
  - SCAR [None]
  - RASH [None]
  - WEIGHT INCREASED [None]
  - ARTHRITIS [None]
  - PAIN IN EXTREMITY [None]
  - SCIATICA [None]
  - PAIN [None]
  - DEPRESSION [None]
  - ASTHENIA [None]
